FAERS Safety Report 25871212 (Version 3)
Quarter: 2025Q4

REPORT INFORMATION
  Report Type: Spontaneous
  Country: HK (occurrence: HK)
  Receive Date: 20251001
  Receipt Date: 20251017
  Transmission Date: 20260118
  Serious: Yes (Other)
  Sender: MERCK SHARP & DOHME LLC
  Company Number: HK-009507513-2334231

PATIENT
  Age: 66 Year
  Sex: Female

DRUGS (8)
  1. KEYTRUDA [Suspect]
     Active Substance: PEMBROLIZUMAB
     Indication: Endometrial cancer stage IV
     Dosage: STRENGTH: 100MG/4ML.
     Route: 042
     Dates: start: 20250530, end: 20250530
  2. KEYTRUDA [Suspect]
     Active Substance: PEMBROLIZUMAB
     Indication: Endometrial cancer stage IV
     Dosage: STRENGTH: 100MG/4ML.
     Route: 042
     Dates: start: 20250620, end: 20250620
  3. KEYTRUDA [Suspect]
     Active Substance: PEMBROLIZUMAB
     Indication: Endometrial cancer stage IV
     Dosage: STRENGTH: 100MG/4ML.
     Route: 042
     Dates: start: 20250811, end: 20250811
  4. KEYTRUDA [Suspect]
     Active Substance: PEMBROLIZUMAB
     Indication: Endometrial cancer stage IV
     Dosage: STRENGTH: 100MG/4ML.
     Route: 042
     Dates: start: 20250901, end: 20250901
  5. KEYTRUDA [Suspect]
     Active Substance: PEMBROLIZUMAB
     Indication: Endometrial cancer stage IV
     Dosage: STRENGTH: 100MG/4ML.
     Route: 042
     Dates: start: 20250922, end: 20250922
  6. KEYTRUDA [Suspect]
     Active Substance: PEMBROLIZUMAB
     Indication: Endometrial cancer stage IV
     Dosage: STRENGTH: 100MG/4ML.
     Route: 042
     Dates: start: 20251013, end: 20251013
  7. ABRAXANE [Concomitant]
     Active Substance: PACLITAXEL
     Indication: Endometrial cancer stage IV
     Dosage: STRENGTH 100 MG. QUANTITY: 4VIALS. 390MG=78ML (UNDILUTED);  ABRAXANE (PACLITAXEL) WAS USED ON 9TH...
     Route: 042
     Dates: start: 20250530, end: 20251013
  8. CARBOPLATIN [Concomitant]
     Active Substance: CARBOPLATIN
     Indication: Endometrial cancer stage IV
     Dosage: QUANTITY: 3 VIALS IV 410MG=41ML IN 250ML D5;
     Route: 042
     Dates: start: 20250509, end: 20251013

REACTIONS (3)
  - Liver injury [Unknown]
  - Rash [Unknown]
  - Inappropriate schedule of product administration [Unknown]

NARRATIVE: CASE EVENT DATE: 20250530
